FAERS Safety Report 10722789 (Version 2)
Quarter: 2015Q1

REPORT INFORMATION
  Report Type: Report from Study
  Country: CA (occurrence: CA)
  Receive Date: 20150120
  Receipt Date: 20150129
  Transmission Date: 20150721
  Serious: Yes (Other)
  Sender: FDA-Public Use
  Company Number: CA-AMGEN-CANSL2014075935

PATIENT
  Age: 65 Year
  Sex: Female

DRUGS (1)
  1. PROLIA [Suspect]
     Active Substance: DENOSUMAB
     Indication: OSTEOPOROSIS POSTMENOPAUSAL
     Dosage: 60 MG/ML, UNK
     Route: 065
     Dates: start: 20140220

REACTIONS (10)
  - Gastric disorder [Unknown]
  - Proctitis [Unknown]
  - Skin cancer [Unknown]
  - Intestinal operation [Unknown]
  - Adverse drug reaction [Not Recovered/Not Resolved]
  - Breast cancer [Unknown]
  - Ill-defined disorder [Unknown]
  - Bone disorder [Unknown]
  - Vaginal inflammation [Unknown]
  - Musculoskeletal disorder [Unknown]

NARRATIVE: CASE EVENT DATE: 20140820
